FAERS Safety Report 5032290-9 (Version None)
Quarter: 2006Q2

REPORT INFORMATION
  Report Type: 
  Country: None (occurrence: None)
  Receive Date: 20060621
  Receipt Date: 20060621
  Transmission Date: 20061013
  Serious: Yes (Other)
  Sender: FDA-Public Use
  Company Number: None

PATIENT
  Age: 29 Year
  Sex: Female
  Weight: 56.246 kg

DRUGS (2)
  1. TUBERSOL [Suspect]
     Indication: TUBERCULIN TEST
     Dosage: 0.1 ML  X1 DOSE ID
     Dates: start: 20060615
  2. CLARITIN [Concomitant]

REACTIONS (5)
  - ANGIONEUROTIC OEDEMA [None]
  - INJECTION SITE ERYTHEMA [None]
  - PRURITUS [None]
  - RASH ERYTHEMATOUS [None]
  - URTICARIA [None]
